FAERS Safety Report 9379364 (Version 2)
Quarter: 2016Q2

REPORT INFORMATION
  Report Type: Other
  Country: GB (occurrence: GB)
  Receive Date: 20130702
  Receipt Date: 20160609
  Transmission Date: 20160815
  Serious: Yes (Other)
  Sender: FDA-Public Use
  Company Number: GB-MYLANLABS-2013S1013932

PATIENT

DRUGS (4)
  1. RISPERIDONE. [Suspect]
     Active Substance: RISPERIDONE
     Indication: SCHIZOPHRENIA
     Dosage: 4 MG,UNK
     Route: 048
     Dates: start: 20130409
  2. XEPLION [Suspect]
     Active Substance: PALIPERIDONE PALMITATE
     Dosage: 50 MG,UNK
     Route: 030
     Dates: start: 20130509
  3. XEPLION [Suspect]
     Active Substance: PALIPERIDONE PALMITATE
     Indication: SCHIZOPHRENIA
     Dosage: 100 MG,UNK
     Route: 030
     Dates: start: 20130502
  4. RISPERIDONE. [Suspect]
     Active Substance: RISPERIDONE
     Dosage: 6 MG,UNK
     Route: 048
     Dates: start: 20130523

REACTIONS (6)
  - Drug dose omission [Unknown]
  - Hypokalaemia [Recovering/Resolving]
  - Renal impairment [Recovering/Resolving]
  - Blood prolactin increased [Not Recovered/Not Resolved]
  - Mental impairment [Unknown]
  - Incorrect dose administered [Unknown]

NARRATIVE: CASE EVENT DATE: 20130430
